FAERS Safety Report 13672522 (Version 2)
Quarter: 2017Q2

REPORT INFORMATION
  Report Type: Spontaneous
  Country: BR (occurrence: BR)
  Receive Date: 20170621
  Receipt Date: 20170622
  Transmission Date: 20170830
  Serious: Yes (Other)
  Sender: FDA-Public Use
  Company Number: BR-PFIZER INC-2017260531

PATIENT
  Age: 91 Year
  Sex: Female

DRUGS (1)
  1. XALATAN [Suspect]
     Active Substance: LATANOPROST

REACTIONS (5)
  - Conjunctivitis [Recovered/Resolved]
  - Intraocular pressure increased [Unknown]
  - Limb asymmetry [Not Recovered/Not Resolved]
  - Cataract [Unknown]
  - Fat embolism [Unknown]

NARRATIVE: CASE EVENT DATE: 2016
